FAERS Safety Report 11307223 (Version 1)
Quarter: 2015Q3

REPORT INFORMATION
  Report Type: Spontaneous
  Country: US (occurrence: US)
  Receive Date: 20150723
  Receipt Date: 20150723
  Transmission Date: 20151125
  Serious: No
  Sender: FDA-Public Use
  Company Number: US-AKORN PHARMACEUTICALS-2014VER00095

PATIENT
  Age: 12 Year
  Sex: Female
  Weight: 28.57 kg

DRUGS (2)
  1. ETHOSUXIMIDE. [Suspect]
     Active Substance: ETHOSUXIMIDE
     Indication: EPILEPSY
     Dosage: 250 MG, 3X/DAY
     Route: 048
     Dates: start: 201404
  2. ETHOSUXIMIDE. [Suspect]
     Active Substance: ETHOSUXIMIDE
     Indication: EPILEPSY
     Dosage: UNK UNK, ONCE
     Dates: start: 2014, end: 2014

REACTIONS (3)
  - Choking [Recovered/Resolved]
  - Dysphagia [Not Recovered/Not Resolved]
  - Odynophagia [Recovered/Resolved]

NARRATIVE: CASE EVENT DATE: 2014
